FAERS Safety Report 17134368 (Version 1)
Quarter: 2019Q4

REPORT INFORMATION
  Report Type: Report from Study
  Country: NL (occurrence: NL)
  Receive Date: 20191210
  Receipt Date: 20191210
  Transmission Date: 20200122
  Serious: Yes (Hospitalization)
  Sender: FDA-Public Use
  Company Number: NL-MYLANLABS-2019M1120011

PATIENT
  Age: 59 Year
  Sex: Male
  Weight: 68 kg

DRUGS (4)
  1. ROPINIROLE. [Suspect]
     Active Substance: ROPINIROLE
     Indication: PRODUCT USED FOR UNKNOWN INDICATION
     Dosage: UNK
     Route: 065
  2. DUODOPA [Suspect]
     Active Substance: CARBIDOPA\LEVODOPA
     Indication: PARKINSON^S DISEASE
     Dosage: MD3.0ML;CD INCREASED 0.1ML/HR-4.1ML/HR;ED2.0ML NIGHT PUMP:MD1.9ML;CD3.0 ML/HR;ED1.2ML
     Route: 050
     Dates: start: 20181005
  3. DUODOPA [Suspect]
     Active Substance: CARBIDOPA\LEVODOPA
     Dosage: UNK
     Route: 050
  4. ROPINIROLE. [Suspect]
     Active Substance: ROPINIROLE
     Dosage: UNK
     Route: 065

REACTIONS (14)
  - Disease risk factor [Not Recovered/Not Resolved]
  - Malaise [Recovering/Resolving]
  - Insomnia [Recovered/Resolved]
  - Feeling abnormal [Recovered/Resolved]
  - Delirium [Recovered/Resolved]
  - Confusional state [Not Recovered/Not Resolved]
  - Euphoric mood [Recovered/Resolved]
  - Libido disorder [Not Recovered/Not Resolved]
  - Pyrexia [Not Recovered/Not Resolved]
  - Influenza [Recovered/Resolved]
  - Decreased activity [Recovering/Resolving]
  - Impulse-control disorder [Not Recovered/Not Resolved]
  - Depressed mood [Not Recovered/Not Resolved]
  - Apathy [Unknown]

NARRATIVE: CASE EVENT DATE: 2018
